FAERS Safety Report 7276126-4 (Version None)
Quarter: 2011Q1

REPORT INFORMATION
  Report Type: 
  Country: None (occurrence: None)
  Receive Date: 20110204
  Receipt Date: 20110201
  Transmission Date: 20110831
  Serious: Yes (Hospitalization)
  Sender: FDA-Public Use
  Company Number: JP-BRACCO-004473

PATIENT
  Age: 12 Month
  Sex: Male

DRUGS (2)
  1. IOPAMIDOL [Suspect]
     Indication: COMPUTERISED TOMOGRAM
     Dosage: WITH A TWO-FOLD DILUTION
     Route: 054
     Dates: start: 20110126, end: 20110126
  2. IOPAMIDOL [Suspect]
     Indication: FISTULA REPAIR
     Dosage: WITH A TWO-FOLD DILUTION
     Route: 054
     Dates: start: 20110126, end: 20110126

REACTIONS (1)
  - ANAPHYLACTIC SHOCK [None]
